FAERS Safety Report 6262249-5 (Version None)
Quarter: 2009Q3

REPORT INFORMATION
  Report Type: 
  Country: None (occurrence: None)
  Receive Date: 20090709
  Receipt Date: 20090702
  Transmission Date: 20100115
  Serious: Yes (Hospitalization)
  Sender: FDA-Public Use
  Company Number: DE-ABBOTT-09P-062-0583226-00

PATIENT
  Sex: Male

DRUGS (8)
  1. HUMIRA [Suspect]
     Indication: DRUG USE FOR UNKNOWN INDICATION
     Dates: end: 20090611
  2. MTX [Concomitant]
     Indication: DRUG USE FOR UNKNOWN INDICATION
  3. MST [Concomitant]
     Indication: DRUG USE FOR UNKNOWN INDICATION
  4. VITALON [Concomitant]
     Indication: DRUG USE FOR UNKNOWN INDICATION
  5. OMEP [Concomitant]
     Indication: DRUG USE FOR UNKNOWN INDICATION
  6. CALCIUM [Concomitant]
     Indication: DRUG USE FOR UNKNOWN INDICATION
  7. CORTISON [Concomitant]
     Indication: DRUG USE FOR UNKNOWN INDICATION
  8. ANTIBIOTICS [Concomitant]
     Indication: DRUG USE FOR UNKNOWN INDICATION

REACTIONS (4)
  - ADHESION [None]
  - ILEUS [None]
  - INJURY [None]
  - PNEUMONIA [None]
